FAERS Safety Report 6307633-6 (Version None)
Quarter: 2009Q3

REPORT INFORMATION
  Report Type: 
  Country: None (occurrence: None)
  Receive Date: 20090812
  Receipt Date: 20090812
  Transmission Date: 20100115
  Serious: Yes (Death)
  Sender: FDA-Public Use
  Company Number: None

PATIENT
  Age: 62 Year
  Sex: Male
  Weight: 76.6579 kg

DRUGS (2)
  1. SUTENT [Suspect]
     Indication: OESOPHAGEAL CARCINOMA
     Dosage: 37.5MG PO DAILY: ORAL
     Route: 048
     Dates: start: 20090714, end: 20090727
  2. TAXOL [Suspect]
     Indication: OESOPHAGEAL CARCINOMA
     Dosage: 171MG IV D1,8,15 : INTRAVENOUS (NOT OTHERWISE SPECIFIED
     Route: 042
     Dates: start: 20090714, end: 20090727

REACTIONS (12)
  - ASTHENIA [None]
  - CARDIAC ARREST [None]
  - COLD SWEAT [None]
  - DEEP VEIN THROMBOSIS [None]
  - FALL [None]
  - HYPOTENSION [None]
  - LETHARGY [None]
  - LUNG INFILTRATION [None]
  - METASTASES TO LIVER [None]
  - PALLOR [None]
  - PLEURAL EFFUSION [None]
  - PULMONARY EMBOLISM [None]
